FAERS Safety Report 10590211 (Version 2)
Quarter: 2015Q1

REPORT INFORMATION
  Report Type: Spontaneous
  Country: US (occurrence: US)
  Receive Date: 20141118
  Receipt Date: 20150107
  Transmission Date: 20150720
  Serious: No
  Sender: FDA-Public Use
  Company Number: US-PFIZER INC-2014315396

PATIENT
  Age: 63 Year
  Sex: Female
  Weight: 48 kg

DRUGS (8)
  1. DARVOCET [Suspect]
     Active Substance: ACETAMINOPHEN\PROPOXYPHENE HYDROCHLORIDE
     Dosage: UNK
     Route: 045
  2. CEPHALEXIN. [Suspect]
     Active Substance: CEPHALEXIN
     Dosage: UNK
  3. CODEINE SULFATE. [Suspect]
     Active Substance: CODEINE SULFATE
     Dosage: UNK
  4. MYOCHRYSINE [Suspect]
     Active Substance: GOLD SODIUM THIOMALATE
     Dosage: UNK
  5. FIORINAL [Suspect]
     Active Substance: ASPIRIN\BUTALBITAL\CAFFEINE
     Dosage: UNK
  6. VOLTAREN [Suspect]
     Active Substance: DICLOFENAC SODIUM
     Dosage: UNK
  7. CYTOTEC [Suspect]
     Active Substance: MISOPROSTOL
     Dosage: UNK
  8. VICODIN [Suspect]
     Active Substance: ACETAMINOPHEN\HYDROCODONE BITARTRATE
     Dosage: UNK

REACTIONS (6)
  - Swollen tongue [Recovered/Resolved]
  - Rash [Recovered/Resolved]
  - Drug hypersensitivity [Recovered/Resolved]
  - Lip swelling [Recovered/Resolved]
  - Malaise [Not Recovered/Not Resolved]
  - Tremor [Not Recovered/Not Resolved]

NARRATIVE: CASE EVENT DATE: 20140826
